FAERS Safety Report 23629447 (Version 3)
Quarter: 2024Q3

REPORT INFORMATION
  Report Type: Spontaneous
  Country: JP (occurrence: JP)
  Receive Date: 20240313
  Receipt Date: 20240723
  Transmission Date: 20241016
  Serious: Yes (Other)
  Sender: ALEXION PHARMACEUTICALS
  Company Number: JP-AstraZeneca-CH-00580821A

PATIENT
  Age: 73 Year
  Sex: Female
  Weight: 42.6 kg

DRUGS (5)
  1. ULTOMIRIS [Suspect]
     Active Substance: RAVULIZUMAB-CWVZ
     Indication: Paroxysmal nocturnal haemoglobinuria
     Dosage: 3000 MILLIGRAM, Q56
     Route: 041
     Dates: start: 20220309
  2. LANSOPRAZOLE [Concomitant]
     Active Substance: LANSOPRAZOLE
     Indication: Prophylaxis against gastrointestinal ulcer
     Dosage: 15 MILLIGRAM, QD
     Route: 048
     Dates: start: 20181103
  3. GASLON [Concomitant]
     Active Substance: IRSOGLADINE MALEATE
     Indication: Prophylaxis against gastrointestinal ulcer
     Dosage: 4 MILLIGRAM, QD
     Route: 048
     Dates: start: 20151106
  4. FOLIC ACID [Concomitant]
     Active Substance: FOLIC ACID
     Indication: Myelodysplastic syndrome
     Dosage: 5 MILLIGRAM, TID
     Route: 048
     Dates: start: 20170117
  5. METHYLCOBALAMIN [Concomitant]
     Active Substance: METHYLCOBALAMIN
     Indication: Myelodysplastic syndrome
     Dosage: 500 MICROGRAM, TID
     Route: 048
     Dates: start: 20181212

REACTIONS (2)
  - Congenital aural fistula [Recovered/Resolved]
  - Infected fistula [Recovered/Resolved]

NARRATIVE: CASE EVENT DATE: 20240305
